FAERS Safety Report 8814627 (Version 2)
Quarter: 2012Q4

REPORT INFORMATION
  Report Type: 
  Country: US (occurrence: US)
  Receive Date: 20120928
  Receipt Date: 20121026
  Transmission Date: 20130627
  Serious: Yes (Hospitalization, Other)
  Sender: FDA-Public Use
  Company Number: US-ACTELION-A-NJ2012-71874

PATIENT
  Age: 73 Year
  Sex: Female

DRUGS (4)
  1. TRACLEER [Suspect]
     Indication: PULMONARY ARTERIAL HYPERTENSION
     Dosage: 125 mg, bid
     Route: 048
     Dates: start: 201202
  2. TRACLEER [Suspect]
     Dosage: 65 mg, bid
     Route: 048
     Dates: start: 20111229, end: 201202
  3. PLAVIX [Concomitant]
  4. ASPIRIN [Concomitant]

REACTIONS (3)
  - Post procedural haemorrhage [Recovered/Resolved]
  - Basal cell carcinoma [Recovered/Resolved]
  - Skin neoplasm excision [Recovered/Resolved]
